APPROVED DRUG PRODUCT: SIGNIFOR
Active Ingredient: PASIREOTIDE DIASPARTATE
Strength: EQ 0.6MG BASE/ML (EQ 0.6MG BASE/ML)
Dosage Form/Route: SOLUTION;SUBCUTANEOUS
Application: N200677 | Product #002
Applicant: RECORDATI RARE DISEASES INC
Approved: Dec 14, 2012 | RLD: Yes | RS: No | Type: RX

PATENTS:
Patent 7473761 | Expires: Dec 14, 2026